FAERS Safety Report 7093399-1 (Version None)
Quarter: 2010Q4

REPORT INFORMATION
  Report Type: 
  Country: None (occurrence: None)
  Receive Date: 20101110
  Receipt Date: 20101028
  Transmission Date: 20110411
  Serious: Yes (Hospitalization)
  Sender: FDA-Public Use
  Company Number: PHFR2010GB04914

PATIENT
  Sex: Male

DRUGS (4)
  1. CLOZARIL [Suspect]
     Indication: SCHIZOPHRENIA
     Dosage: UNK
     Route: 048
     Dates: start: 20100930
  2. TENOFOVIR [Concomitant]
     Indication: HIV INFECTION
  3. ABACAVIR [Concomitant]
     Indication: HIV INFECTION
  4. RALTEGRAVIR [Concomitant]
     Indication: HIV INFECTION

REACTIONS (2)
  - IMMUNOSUPPRESSION [None]
  - SCHIZOPHRENIA [None]
